FAERS Safety Report 13551932 (Version 1)
Quarter: 2017Q2

REPORT INFORMATION
  Report Type: Spontaneous
  Country: ES (occurrence: ES)
  Receive Date: 20170516
  Receipt Date: 20170516
  Transmission Date: 20170830
  Serious: Yes (Death, Hospitalization, Other)
  Sender: FDA-Public Use
  Company Number: ES-ALLERGAN-1719335US

PATIENT
  Age: 67 Year
  Sex: Male

DRUGS (4)
  1. METFORMIN [Concomitant]
     Active Substance: METFORMIN HYDROCHLORIDE
     Indication: DIABETES MELLITUS
     Route: 065
  2. TRIPTORELIN PAMOATE - BP [Suspect]
     Active Substance: TRIPTORELIN PAMOATE
     Indication: SCHIZOPHRENIA
     Dosage: 22.5 MG, UNK
     Route: 030
     Dates: start: 20090123, end: 20160411
  3. DECENTAN [Suspect]
     Active Substance: PERPHENAZINE
     Indication: SCHIZOPHRENIA
     Dosage: 8 MG, QD
     Route: 048
     Dates: start: 20160411
  4. COAPROVEL [Concomitant]
     Active Substance: HYDROCHLOROTHIAZIDE\IRBESARTAN
     Indication: HYPERTENSION
     Dosage: 150/12.5 MG, UNK
     Route: 065
     Dates: start: 20090614

REACTIONS (12)
  - Urinary tract infection [Unknown]
  - Respiratory failure [Unknown]
  - Hypoglycaemia [Unknown]
  - Off label use [Unknown]
  - Metabolic acidosis [Unknown]
  - Pneumonia [Unknown]
  - Anaemia [Unknown]
  - Neuroleptic malignant syndrome [Fatal]
  - Renal failure [Unknown]
  - Pancytopenia [Unknown]
  - Urosepsis [Unknown]
  - Hypothermia [Unknown]

NARRATIVE: CASE EVENT DATE: 20161211
